FAERS Safety Report 24987743 (Version 1)
Quarter: 2025Q1

REPORT INFORMATION
  Report Type: Spontaneous
  Country: US (occurrence: US)
  Receive Date: 20250219
  Receipt Date: 20250219
  Transmission Date: 20250409
  Serious: No
  Sender: AMGEN
  Company Number: US-AMGEN-USASP2025030258

PATIENT
  Sex: Female

DRUGS (3)
  1. REPATHA [Suspect]
     Active Substance: EVOLOCUMAB
     Indication: Blood cholesterol increased
     Dosage: 140 MILLIGRAM, Q2WK
     Route: 065
     Dates: start: 202401
  2. ZETIA [Concomitant]
     Active Substance: EZETIMIBE
  3. ZETIA [Concomitant]
     Active Substance: EZETIMIBE

REACTIONS (7)
  - Bone pain [Recovering/Resolving]
  - Arthralgia [Recovering/Resolving]
  - Brain fog [Recovering/Resolving]
  - Pain [Recovering/Resolving]
  - Back pain [Recovering/Resolving]
  - Oropharyngeal pain [Recovering/Resolving]
  - Mouth ulceration [Recovering/Resolving]
